FAERS Safety Report 5750425-7 (Version None)
Quarter: 2008Q2

REPORT INFORMATION
  Report Type: 
  Country: None (occurrence: None)
  Receive Date: 20080523
  Receipt Date: 20080523
  Transmission Date: 20081010
  Serious: Yes (Life-Threatening, Hospitalization)
  Sender: FDA-Public Use
  Company Number: None

PATIENT
  Age: 65 Year
  Sex: Female
  Weight: 62.5964 kg

DRUGS (1)
  1. DIGITEC  25MG  ACTAVIS TOTOWA LLC [Suspect]
     Indication: CARDIAC DISORDER
     Dosage: ONE A DAY  ONE
     Dates: start: 20080115, end: 20080313

REACTIONS (11)
  - ANOREXIA [None]
  - ASTHENIA [None]
  - CHEST DISCOMFORT [None]
  - CHEST PAIN [None]
  - DISORIENTATION [None]
  - DIZZINESS [None]
  - FATIGUE [None]
  - HYPOAESTHESIA [None]
  - MALAISE [None]
  - PALPITATIONS [None]
  - VERTIGO [None]
